FAERS Safety Report 8325766-X (Version None)
Quarter: 2012Q2

REPORT INFORMATION
  Report Type: 
  Country: None (occurrence: None)
  Receive Date: 20120501
  Receipt Date: 20120416
  Transmission Date: 20120825
  Serious: No
  Sender: FDA-Public Use
  Company Number: US-BIOGENIDEC-2011BI045081

PATIENT
  Sex: Female

DRUGS (3)
  1. TYSABRI [Suspect]
     Route: 042
     Dates: start: 20111229, end: 20120101
  2. TYSABRI [Suspect]
     Indication: MULTIPLE SCLEROSIS
     Route: 042
     Dates: start: 20081119, end: 20110613
  3. AVONEX [Concomitant]
     Dates: start: 20070126

REACTIONS (13)
  - RESTLESSNESS [None]
  - TREMOR [None]
  - ABDOMINAL DISCOMFORT [None]
  - STRESS [None]
  - PAIN [None]
  - MAJOR DEPRESSION [None]
  - FATIGUE [None]
  - DIZZINESS [None]
  - INSOMNIA [None]
  - TEMPERATURE INTOLERANCE [None]
  - NIGHT SWEATS [None]
  - MUSCLE SPASMS [None]
  - NAUSEA [None]
